FAERS Safety Report 7198102-2 (Version None)
Quarter: 2010Q4

REPORT INFORMATION
  Report Type: 
  Country: None (occurrence: None)
  Receive Date: 20101214
  Receipt Date: 20101207
  Transmission Date: 20110411
  Serious: No
  Sender: FDA-Public Use
  Company Number: INOX-PR-1011S-0001

PATIENT
  Sex: Male

DRUGS (1)
  1. INDIUM IN-111 OXYQUINOLINE [Suspect]
     Indication: INFECTION
     Dosage: 17 MBQ, SINGLE DOSE, I.V.
     Route: 042
     Dates: start: 20100827, end: 20100827

REACTIONS (1)
  - PNEUMONIA ASPIRATION [None]
